FAERS Safety Report 22658135 (Version 1)
Quarter: 2023Q2

REPORT INFORMATION
  Report Type: Spontaneous
  Country: AR (occurrence: AR)
  Receive Date: 20230630
  Receipt Date: 20230630
  Transmission Date: 20230721
  Serious: Yes (Other)
  Sender: FDA-Public Use
  Company Number: AR-002147023-NVSC2023AR148835

PATIENT
  Sex: Female

DRUGS (1)
  1. ACLASTA [Suspect]
     Active Substance: ZOLEDRONIC ACID
     Indication: Osteoporosis
     Dosage: 5 MG, Q12MO
     Route: 003
     Dates: start: 2022

REACTIONS (4)
  - Spinal fracture [Unknown]
  - Device difficult to use [Unknown]
  - Liquid product physical issue [Unknown]
  - Incorrect route of product administration [Unknown]
